FAERS Safety Report 4844156-5 (Version None)
Quarter: 2005Q4

REPORT INFORMATION
  Report Type: 
  Country: None (occurrence: None)
  Receive Date: 20051202
  Receipt Date: 20051123
  Transmission Date: 20060501
  Serious: Yes (Hospitalization, Other)
  Sender: FDA-Public Use
  Company Number: AU-BRISTOL-MYERS SQUIBB COMPANY-13195045

PATIENT
  Sex: Female

DRUGS (3)
  1. AVAPRO [Suspect]
     Route: 048
  2. SOTALOL [Concomitant]
  3. WARFARIN [Concomitant]

REACTIONS (3)
  - ATRIAL FIBRILLATION [None]
  - GLAUCOMA [None]
  - VISUAL DISTURBANCE [None]
